FAERS Safety Report 7298247-2 (Version None)
Quarter: 2011Q1

REPORT INFORMATION
  Report Type: 
  Country: None (occurrence: None)
  Receive Date: 20110217
  Receipt Date: 20101227
  Transmission Date: 20110831
  Serious: Yes (Other)
  Sender: FDA-Public Use
  Company Number: US-BAYER-201038210NA

PATIENT
  Sex: Female

DRUGS (3)
  1. YASMIN [Suspect]
     Route: 048
     Dates: start: 20030801, end: 20040815
  2. YAZ [Suspect]
     Route: 048
     Dates: start: 20030801, end: 20040815
  3. LOVENOX [Concomitant]
     Indication: PRODUCT USED FOR UNKNOWN INDICATION
     Dosage: UNK
     Dates: start: 20040801

REACTIONS (1)
  - DEEP VEIN THROMBOSIS [None]
